FAERS Safety Report 7763209-5 (Version None)
Quarter: 2011Q3

REPORT INFORMATION
  Report Type: 
  Country: None (occurrence: None)
  Receive Date: 20110920
  Receipt Date: 20110914
  Transmission Date: 20111222
  Serious: Yes (Death, Congenital Anomaly, Other)
  Sender: FDA-Public Use
  Company Number: PHHY2011DK81650

PATIENT
  Sex: Female

DRUGS (2)
  1. TEGRETOL [Suspect]
     Dosage: MATERNAL DOSE: 800 MG, D
     Route: 064
  2. VALPROATE SODIUM [Suspect]
     Dosage: MATERNAL DOSE: 900 MG, D
     Route: 064

REACTIONS (15)
  - MATERNAL EXPOSURE DURING PREGNANCY [None]
  - MICROGNATHIA [None]
  - DISSEMINATED INTRAVASCULAR COAGULATION [None]
  - PTERYGIUM COLLI [None]
  - CUTIS LAXA [None]
  - MATERNAL DRUGS AFFECTING FOETUS [None]
  - CONGENITAL NOSE MALFORMATION [None]
  - HYPOTONIA [None]
  - INTRA-UTERINE DEATH [None]
  - PREMATURE BABY [None]
  - CLEFT PALATE [None]
  - PREMATURE SEPARATION OF PLACENTA [None]
  - PIERRE ROBIN SYNDROME [None]
  - CAESAREAN SECTION [None]
  - EAR MALFORMATION [None]
